FAERS Safety Report 12800809 (Version 1)
Quarter: 2016Q4

REPORT INFORMATION
  Report Type: Spontaneous
  Country: US (occurrence: US)
  Receive Date: 20161002
  Receipt Date: 20161002
  Transmission Date: 20170207
  Serious: No
  Sender: FDA-Public Use
  Company Number: US-ASTRAZENECA-2016SF04141

PATIENT
  Sex: Female

DRUGS (1)
  1. RHINOCORT ALLERGY [Suspect]
     Active Substance: BUDESONIDE
     Indication: NASAL CONGESTION
     Dosage: UNKNOWN
     Route: 045

REACTIONS (1)
  - Nasal congestion [Unknown]
